FAERS Safety Report 24008338 (Version 1)
Quarter: 2024Q2

REPORT INFORMATION
  Report Type: Spontaneous
  Country: US (occurrence: US)
  Receive Date: 20240625
  Receipt Date: 20240625
  Transmission Date: 20240716
  Serious: Yes (Hospitalization, Other)
  Sender: FDA-Public Use
  Company Number: US-MLMSERVICE-20240607-PI092363-00040-1

PATIENT
  Age: 64 Year
  Sex: Female

DRUGS (1)
  1. ALENDRONATE SODIUM [Suspect]
     Active Substance: ALENDRONATE SODIUM
     Indication: Osteopenia
     Dosage: 70 MILLIGRAM, EVERY WEEK
     Route: 065

REACTIONS (2)
  - Atypical femur fracture [Recovered/Resolved]
  - Fall [Recovering/Resolving]
